FAERS Safety Report 9940838 (Version 1)
Quarter: 2014Q1

REPORT INFORMATION
  Report Type: Spontaneous
  Country: PE (occurrence: PE)
  Receive Date: 20140303
  Receipt Date: 20140303
  Transmission Date: 20141002
  Serious: Yes (Death)
  Sender: FDA-Public Use
  Company Number: PE-PFIZER INC-2014058051

PATIENT
  Age: 44 Year
  Sex: Male

DRUGS (1)
  1. CARDURA XL [Suspect]
     Dosage: UNK
     Route: 048

REACTIONS (2)
  - Pulmonary oedema [Fatal]
  - Brain oedema [Fatal]
